FAERS Safety Report 6358071-1 (Version None)
Quarter: 2009Q3

REPORT INFORMATION
  Report Type: 
  Country: None (occurrence: None)
  Receive Date: 20090916
  Receipt Date: 20090908
  Transmission Date: 20100115
  Serious: Yes (Other)
  Sender: FDA-Public Use
  Company Number: A0807489A

PATIENT
  Age: 65 Year
  Sex: Male

DRUGS (1)
  1. AVANDIA [Suspect]
     Dosage: 4MG PER DAY
     Route: 065
     Dates: start: 20030101, end: 20061231

REACTIONS (6)
  - BIPOLAR DISORDER [None]
  - DIABETES MELLITUS [None]
  - MENTAL DISORDER [None]
  - MYOCARDIAL INFARCTION [None]
  - NERVE INJURY [None]
  - SLEEP DISORDER [None]
